FAERS Safety Report 14664462 (Version 1)
Quarter: 2018Q1

REPORT INFORMATION
  Report Type: Spontaneous
  Country: US (occurrence: US)
  Receive Date: 20180321
  Receipt Date: 20180321
  Transmission Date: 20180509
  Serious: Yes (Death)
  Sender: FDA-Public Use
  Company Number: US-PFIZER INC-2018116416

PATIENT
  Age: 8 Decade
  Sex: Male

DRUGS (1)
  1. MYLOTARG [Suspect]
     Active Substance: GEMTUZUMAB OZOGAMICIN
     Dosage: 3 MG/M2, UNK (ON DAYS 1, 4, 7)

REACTIONS (3)
  - Nervous system disorder [Unknown]
  - Sepsis [Fatal]
  - Febrile neutropenia [Fatal]
